FAERS Safety Report 9470117 (Version 1)
Quarter: 2013Q3

REPORT INFORMATION
  Report Type: Spontaneous
  Country: US (occurrence: US)
  Receive Date: 20130822
  Receipt Date: 20130822
  Transmission Date: 20140515
  Serious: Yes (Hospitalization, Other)
  Sender: FDA-Public Use
  Company Number: US-SANOFI-AVENTIS-2013SA083478

PATIENT
  Age: 77 Year
  Sex: Male

DRUGS (5)
  1. LANTUS SOLOSTAR [Suspect]
     Indication: TYPE 2 DIABETES MELLITUS
     Dosage: 21-22 UNITS
     Route: 058
  2. HUMALOG [Suspect]
     Route: 065
  3. METFORMIN [Suspect]
  4. GLIPIZIDE [Suspect]
  5. SOLOSTAR [Concomitant]
     Indication: TYPE 2 DIABETES MELLITUS

REACTIONS (8)
  - Pancreatolithiasis [Unknown]
  - Shock hypoglycaemic [Unknown]
  - Hypoglycaemia [Unknown]
  - Incorrect route of drug administration [Unknown]
  - Peripheral vascular disorder [Unknown]
  - Injection site haemorrhage [Unknown]
  - Blood glucose increased [Unknown]
  - Therapeutic response decreased [Unknown]
